FAERS Safety Report 23466293 (Version 3)
Quarter: 2024Q2

REPORT INFORMATION
  Report Type: Spontaneous
  Country: US (occurrence: US)
  Receive Date: 20240201
  Receipt Date: 20240403
  Transmission Date: 20240716
  Serious: No
  Sender: FDA-Public Use
  Company Number: US-PFIZER INC-202400028599

PATIENT
  Age: 75 Year
  Sex: Male

DRUGS (5)
  1. INLYTA [Suspect]
     Active Substance: AXITINIB
     Indication: Renal cancer stage IV
     Dosage: 5 MG IN THE MORNING AND 5 AT NIGHT
  2. INLYTA [Suspect]
     Active Substance: AXITINIB
     Dosage: AT NIGHT
  3. INLYTA [Suspect]
     Active Substance: AXITINIB
     Dosage: ONE IN THE MORNING AND ONE AT NIGHT
  4. INLYTA [Suspect]
     Active Substance: AXITINIB
     Dosage: TAKE 2 MG PO (PER ORAL) BID (TWICE A DAY)
     Route: 048
  5. INLYTA [Suspect]
     Active Substance: AXITINIB
     Dosage: TAKE 2 TABLETS BY MOUTH EVERY 12 HOURS
     Route: 048

REACTIONS (3)
  - Weight decreased [Unknown]
  - Illness [Unknown]
  - Off label use [Unknown]
